FAERS Safety Report 6566479-4 (Version None)
Quarter: 2010Q1

REPORT INFORMATION
  Report Type: 
  Country: None (occurrence: None)
  Receive Date: 20100127
  Receipt Date: 20100113
  Transmission Date: 20100710
  Serious: Yes (Hospitalization)
  Sender: FDA-Public Use
  Company Number: 004872

PATIENT
  Age: 70 Year
  Sex: Male

DRUGS (5)
  1. OMEPRAZOLE [Suspect]
     Dosage: (OCCASIONALLY BETWEEN 20 AND 40 MG/DAY), (20 MG QD)
     Dates: start: 19980101, end: 20020101
  2. OMEPRAZOLE [Suspect]
     Dosage: (OCCASIONALLY BETWEEN 20 AND 40 MG/DAY), (20 MG QD)
     Dates: start: 20020101, end: 20090201
  3. CALCIUM [Concomitant]
  4. MAGNESIUM [Concomitant]
  5. CALCITRIOL [Concomitant]

REACTIONS (7)
  - BLOOD 1,25-DIHYDROXYCHOLECALCIFEROL DECREASED [None]
  - BLOOD PARATHYROID HORMONE DECREASED [None]
  - GIARDIASIS [None]
  - HYPOCALCAEMIA [None]
  - HYPOMAGNESAEMIA [None]
  - LATENT TETANY [None]
  - SUPRAVENTRICULAR TACHYCARDIA [None]
